FAERS Safety Report 12658497 (Version 1)
Quarter: 2016Q3

REPORT INFORMATION
  Report Type: Spontaneous
  Country: AR (occurrence: None)
  Receive Date: 20160816
  Receipt Date: 20160816
  Transmission Date: 20161109
  Serious: Yes (Disabling)
  Sender: FDA-Public Use
  Company Number: None

PATIENT
  Age: 55 Year
  Sex: Female
  Weight: 33.57 kg

DRUGS (1)
  1. ATORVASTATINA 10 MG ELEA [Suspect]
     Active Substance: ATORVASTATIN CALCIUM
     Indication: BLOOD CHOLESTEROL ABNORMAL
     Route: 048
     Dates: start: 20160505, end: 20160813

REACTIONS (10)
  - Nausea [None]
  - Muscular weakness [None]
  - Fatigue [None]
  - Back pain [None]
  - Flatulence [None]
  - Diarrhoea [None]
  - Abdominal pain upper [None]
  - Myalgia [None]
  - Tremor [None]
  - Discomfort [None]

NARRATIVE: CASE EVENT DATE: 20160814
